FAERS Safety Report 5277897-9 (Version None)
Quarter: 2007Q1

REPORT INFORMATION
  Report Type: 
  Country: None (occurrence: None)
  Receive Date: 20070321
  Receipt Date: 20070308
  Transmission Date: 20070707
  Serious: Yes (Hospitalization)
  Sender: FDA-Public Use
  Company Number: 237978

PATIENT
  Age: 67 Year
  Sex: Female
  Weight: 61.2 kg

DRUGS (3)
  1. RITUXAN [Suspect]
     Indication: RHEUMATOID ARTHRITIS
     Dates: start: 20060928
  2. RITUXAN [Suspect]
     Indication: RHEUMATOID ARTHRITIS
     Dates: start: 20061002
  3. PREDNISONE TAB [Concomitant]

REACTIONS (1)
  - GALLBLADDER OPERATION [None]
